FAERS Safety Report 5471840-5 (Version None)
Quarter: 2007Q3

REPORT INFORMATION
  Report Type: 
  Country: None (occurrence: None)
  Receive Date: 20070928
  Receipt Date: 20070621
  Transmission Date: 20080115
  Serious: No
  Sender: FDA-Public Use
  Company Number: US-BRISTOL-MYERS SQUIBB COMPANY-13822549

PATIENT
  Age: 53 Year
  Sex: Female
  Weight: 91 kg

DRUGS (5)
  1. DEFINITY [Suspect]
     Indication: ECHOCARDIOGRAM
     Dates: start: 20070621, end: 20070621
  2. ALBUTEROL [Concomitant]
  3. LASIX [Concomitant]
  4. ASPIRIN [Concomitant]
  5. LOVENOX [Concomitant]

REACTIONS (1)
  - HEADACHE [None]
